FAERS Safety Report 7543669-5 (Version None)
Quarter: 2011Q2

REPORT INFORMATION
  Report Type: 
  Country: None (occurrence: None)
  Receive Date: 20110613
  Receipt Date: 20030224
  Transmission Date: 20111010
  Serious: Yes (Hospitalization)
  Sender: FDA-Public Use
  Company Number: PHHO2002JP10529

PATIENT
  Sex: Male
  Weight: 58.6 kg

DRUGS (9)
  1. NEORAL [Suspect]
     Dosage: 160 MG, UNK
     Route: 048
     Dates: start: 20020918, end: 20021207
  2. NEORAL [Suspect]
     Dosage: 180 MG/DAY
     Route: 048
     Dates: start: 20021218
  3. NEORAL [Suspect]
     Dosage: UNK, NO TREATMENT
     Dates: start: 20021208, end: 20021217
  4. NEORAL [Suspect]
     Indication: RENAL TRANSPLANT
     Dosage: 140 MG/DAY
     Route: 048
     Dates: start: 20020523, end: 20020612
  5. SELBEX [Concomitant]
  6. NEORAL [Suspect]
     Dosage: 160 MG/DAY
     Route: 048
     Dates: start: 20020613, end: 20020813
  7. WARFARIN POTASSIUM [Concomitant]
  8. NEORAL [Suspect]
     Dosage: 140 MG/DAY
     Route: 048
     Dates: start: 20020814, end: 20020917
  9. ZANTAC [Concomitant]

REACTIONS (2)
  - NEPHROLITHIASIS [None]
  - ABDOMINAL PAIN UPPER [None]
